FAERS Safety Report 6654361-3 (Version None)
Quarter: 2010Q1

REPORT INFORMATION
  Report Type: 
  Country: None (occurrence: None)
  Receive Date: 20100326
  Receipt Date: 20100316
  Transmission Date: 20100710
  Serious: Yes (Disabling)
  Sender: FDA-Public Use
  Company Number: GB-PFIZER INC-2009310782

PATIENT
  Age: 38 Year
  Sex: Female

DRUGS (4)
  1. CHAMPIX [Suspect]
     Indication: SMOKING CESSATION THERAPY
     Dosage: UNK
     Route: 048
     Dates: start: 20091023, end: 20091130
  2. MORPHINE [Suspect]
  3. LANSOPRAZOLE [Concomitant]
  4. TRAMADOL [Concomitant]

REACTIONS (3)
  - DEPRESSED MOOD [None]
  - DRUG INTERACTION [None]
  - SUICIDAL IDEATION [None]
